FAERS Safety Report 5710935-5 (Version None)
Quarter: 2008Q2

REPORT INFORMATION
  Report Type: 
  Country: None (occurrence: None)
  Receive Date: 20080421
  Receipt Date: 20080409
  Transmission Date: 20081010
  Serious: Yes (Other)
  Sender: FDA-Public Use
  Company Number: PHHY2008JP05252

PATIENT
  Age: 65 Year
  Sex: Female

DRUGS (2)
  1. STEROIDS NOS [Concomitant]
  2. NEORAL [Suspect]
     Indication: NEPHROTIC SYNDROME
     Dosage: 25 MG, BID
     Route: 048

REACTIONS (4)
  - APHASIA [None]
  - COMMUNICATION DISORDER [None]
  - CONFUSIONAL STATE [None]
  - CRYING [None]
